FAERS Safety Report 5891930-2 (Version None)
Quarter: 2008Q3

REPORT INFORMATION
  Report Type: 
  Country: None (occurrence: None)
  Receive Date: 20080922
  Receipt Date: 20080911
  Transmission Date: 20090109
  Serious: Yes (Hospitalization)
  Sender: FDA-Public Use
  Company Number: JP-ASTRAZENECA-2008AP05609

PATIENT
  Age: 58 Year
  Sex: Female
  Weight: 48 kg

DRUGS (7)
  1. ESOMEPRAZOLE [Suspect]
     Indication: PROPHYLAXIS AGAINST GASTROINTESTINAL ULCER
     Route: 048
     Dates: start: 20080519, end: 20080715
  2. RHEUMATREX [Suspect]
     Indication: RHEUMATOID ARTHRITIS
     Route: 048
     Dates: end: 20080715
  3. RIMATIL [Concomitant]
     Indication: RHEUMATOID ARTHRITIS
     Route: 048
     Dates: end: 20080715
  4. MUCOSTA [Concomitant]
     Indication: PROPHYLAXIS AGAINST GASTROINTESTINAL ULCER
     Route: 048
     Dates: end: 20080518
  5. LOXONIN [Concomitant]
     Indication: RHEUMATOID ARTHRITIS
     Route: 048
     Dates: end: 20080715
  6. DERMOVATE [Concomitant]
     Indication: ECZEMA
     Dosage: OPTIMAL DOSE
     Route: 062
     Dates: start: 20080619, end: 20080713
  7. SATOSALBE [Concomitant]
     Indication: ECZEMA
     Dosage: OPTIMAL DOSE
     Route: 062
     Dates: start: 20080619, end: 20080713

REACTIONS (4)
  - BACTERIAL INFECTION [None]
  - ERYSIPELAS [None]
  - IMMUNOSUPPRESSION [None]
  - PNEUMONIA [None]
